FAERS Safety Report 15688819 (Version 3)
Quarter: 2019Q2

REPORT INFORMATION
  Report Type: Spontaneous
  Country: JP (occurrence: JP)
  Receive Date: 20181205
  Receipt Date: 20190401
  Transmission Date: 20190711
  Serious: Yes (Death)
  Sender: FDA-Public Use
  Company Number: JP-CELGENEUS-JPN-20181200672

PATIENT
  Age: 73 Year
  Sex: Male
  Weight: 71.9 kg

DRUGS (6)
  1. S-1TAIHO-OD [Concomitant]
     Indication: METASTATIC GASTRIC CANCER
     Dosage: 120 MILLIGRAM
     Route: 048
     Dates: start: 20180416, end: 20180822
  2. OTERACIL POTASSIUM [Concomitant]
     Active Substance: OTERACIL POTASSIUM
     Indication: METASTATIC GASTRIC CANCER
     Dosage: 120 MILLIGRAM
     Route: 048
     Dates: start: 20180416, end: 20180822
  3. OXALIPLATIN. [Suspect]
     Active Substance: OXALIPLATIN
     Indication: METASTATIC GASTRIC CANCER
     Dosage: 228 MILLIGRAM
     Route: 041
     Dates: start: 20180416, end: 20180808
  4. ABRAXANE [Suspect]
     Active Substance: PACLITAXEL
     Indication: METASTATIC GASTRIC CANCER
     Dosage: 177.4 MILLIGRAM/SQ. METER
     Route: 041
     Dates: start: 20180914, end: 20181022
  5. CYRAMZA [Suspect]
     Active Substance: RAMUCIRUMAB
     Indication: METASTATIC GASTRIC CANCER
     Dosage: 580 MILLIGRAM
     Route: 041
     Dates: start: 20180914, end: 20181015
  6. NIVOLUMAB [Suspect]
     Active Substance: NIVOLUMAB
     Indication: METASTATIC GASTRIC CANCER
     Dosage: 366 MILLIGRAM
     Route: 041
     Dates: start: 20180416, end: 20180808

REACTIONS (5)
  - Neutrophil count decreased [Fatal]
  - Drug eruption [Recovering/Resolving]
  - Pneumonia [Fatal]
  - Papule [Not Recovered/Not Resolved]
  - Perineal ulceration [Unknown]

NARRATIVE: CASE EVENT DATE: 20180928
